FAERS Safety Report 24698614 (Version 6)
Quarter: 2025Q3

REPORT INFORMATION
  Report Type: Spontaneous
  Country: CA (occurrence: CA)
  Receive Date: 20241204
  Receipt Date: 20250827
  Transmission Date: 20251021
  Serious: Yes (Other)
  Sender: Haleon PLC
  Company Number: CA-SANDOZ-SDZ2024CA096916

PATIENT
  Sex: Female

DRUGS (493)
  1. FLONASE ALLERGY RELIEF [Suspect]
     Active Substance: FLUTICASONE PROPIONATE
     Indication: Product used for unknown indication
  2. FLONASE ALLERGY RELIEF [Suspect]
     Active Substance: FLUTICASONE PROPIONATE
     Dosage: 50MG 5QD
  3. FLONASE ALLERGY RELIEF [Suspect]
     Active Substance: FLUTICASONE PROPIONATE
     Dosage: 50MG 5QD
  4. FLONASE ALLERGY RELIEF [Suspect]
     Active Substance: FLUTICASONE PROPIONATE
     Dosage: 50MG 5QD
  5. FLONASE ALLERGY RELIEF [Suspect]
     Active Substance: FLUTICASONE PROPIONATE
  6. FLONASE ALLERGY RELIEF [Suspect]
     Active Substance: FLUTICASONE PROPIONATE
  7. FLONASE ALLERGY RELIEF [Suspect]
     Active Substance: FLUTICASONE PROPIONATE
  8. FLONASE ALLERGY RELIEF [Suspect]
     Active Substance: FLUTICASONE PROPIONATE
  9. FLONASE ALLERGY RELIEF [Suspect]
     Active Substance: FLUTICASONE PROPIONATE
  10. DICLOFENAC SODIUM [Suspect]
     Active Substance: DICLOFENAC SODIUM
     Indication: Product used for unknown indication
  11. DICLOFENAC SODIUM [Suspect]
     Active Substance: DICLOFENAC SODIUM
  12. CODEINE PHOSPHATE [Suspect]
     Active Substance: CODEINE PHOSPHATE
     Indication: Product used for unknown indication
  13. CETIRIZINE [Suspect]
     Active Substance: CETIRIZINE HYDROCHLORIDE
     Indication: Product used for unknown indication
     Dosage: 20 MG, QD
  14. CETIRIZINE [Suspect]
     Active Substance: CETIRIZINE HYDROCHLORIDE
     Dosage: 20 MG, QD
  15. CETIRIZINE [Suspect]
     Active Substance: CETIRIZINE HYDROCHLORIDE
     Dosage: 20 MG, QD
  16. CETIRIZINE [Suspect]
     Active Substance: CETIRIZINE HYDROCHLORIDE
     Dosage: 20 MG, QD
  17. CETIRIZINE [Suspect]
     Active Substance: CETIRIZINE HYDROCHLORIDE
  18. HERBALS\PLANTAGO INDICA WHOLE [Suspect]
     Active Substance: HERBALS\PLANTAGO INDICA WHOLE
     Indication: Product used for unknown indication
  19. HERBALS\PLANTAGO INDICA WHOLE [Suspect]
     Active Substance: HERBALS\PLANTAGO INDICA WHOLE
  20. HERBALS\PLANTAGO INDICA WHOLE [Suspect]
     Active Substance: HERBALS\PLANTAGO INDICA WHOLE
  21. VITAMIN C [Suspect]
     Active Substance: ASCORBIC ACID
     Indication: Product used for unknown indication
  22. OXYCODONE AND ACETAMINOPHEN [Suspect]
     Active Substance: ACETAMINOPHEN\OXYCODONE HYDROCHLORIDE
     Indication: Product used for unknown indication
  23. DIPHENHYDRAMINE HYDROCHLORIDE [Suspect]
     Active Substance: DIPHENHYDRAMINE HYDROCHLORIDE
     Indication: Product used for unknown indication
     Dosage: 75 MG, QD
  24. DIPHENHYDRAMINE HYDROCHLORIDE [Suspect]
     Active Substance: DIPHENHYDRAMINE HYDROCHLORIDE
     Dosage: 75 MG, QD
  25. DIPHENHYDRAMINE HYDROCHLORIDE [Suspect]
     Active Substance: DIPHENHYDRAMINE HYDROCHLORIDE
     Dosage: 75 MG, QD
  26. DIPHENHYDRAMINE HYDROCHLORIDE [Suspect]
     Active Substance: DIPHENHYDRAMINE HYDROCHLORIDE
     Dosage: 75 MG, QD
  27. DIPHENHYDRAMINE HYDROCHLORIDE [Suspect]
     Active Substance: DIPHENHYDRAMINE HYDROCHLORIDE
     Dosage: 75 MG, QD
  28. DIPHENHYDRAMINE HYDROCHLORIDE [Suspect]
     Active Substance: DIPHENHYDRAMINE HYDROCHLORIDE
     Dosage: 75 MG, QD
  29. DIPHENHYDRAMINE HYDROCHLORIDE [Suspect]
     Active Substance: DIPHENHYDRAMINE HYDROCHLORIDE
  30. DIPHENHYDRAMINE HYDROCHLORIDE [Suspect]
     Active Substance: DIPHENHYDRAMINE HYDROCHLORIDE
  31. DIPHENHYDRAMINE HYDROCHLORIDE [Suspect]
     Active Substance: DIPHENHYDRAMINE HYDROCHLORIDE
  32. DIPHENHYDRAMINE HYDROCHLORIDE [Suspect]
     Active Substance: DIPHENHYDRAMINE HYDROCHLORIDE
  33. DIPHENHYDRAMINE HYDROCHLORIDE [Suspect]
     Active Substance: DIPHENHYDRAMINE HYDROCHLORIDE
  34. DIPHENHYDRAMINE HYDROCHLORIDE [Suspect]
     Active Substance: DIPHENHYDRAMINE HYDROCHLORIDE
  35. DIPHENHYDRAMINE HYDROCHLORIDE [Suspect]
     Active Substance: DIPHENHYDRAMINE HYDROCHLORIDE
  36. DIPHENHYDRAMINE HYDROCHLORIDE [Suspect]
     Active Substance: DIPHENHYDRAMINE HYDROCHLORIDE
  37. DIPHENHYDRAMINE HYDROCHLORIDE [Suspect]
     Active Substance: DIPHENHYDRAMINE HYDROCHLORIDE
  38. DIPHENHYDRAMINE HYDROCHLORIDE [Suspect]
     Active Substance: DIPHENHYDRAMINE HYDROCHLORIDE
  39. ABACAVIR SULFATE\LAMIVUDINE [Suspect]
     Active Substance: ABACAVIR SULFATE\LAMIVUDINE
     Indication: Product used for unknown indication
  40. ABACAVIR SULFATE\LAMIVUDINE [Suspect]
     Active Substance: ABACAVIR SULFATE\LAMIVUDINE
  41. ABACAVIR SULFATE [Suspect]
     Active Substance: ABACAVIR SULFATE
     Indication: Product used for unknown indication
  42. ABACAVIR SULFATE [Suspect]
     Active Substance: ABACAVIR SULFATE
  43. ACETAMINOPHEN [Suspect]
     Active Substance: ACETAMINOPHEN
     Indication: Product used for unknown indication
  44. ACETAMINOPHEN [Suspect]
     Active Substance: ACETAMINOPHEN
  45. ALBUTEROL SULFATE [Suspect]
     Active Substance: ALBUTEROL SULFATE
     Indication: Product used for unknown indication
  46. ALBUTEROL SULFATE [Suspect]
     Active Substance: ALBUTEROL SULFATE
  47. ACETAMINOPHEN [Suspect]
     Active Substance: ACETAMINOPHEN
     Indication: Product used for unknown indication
  48. MONTELUKAST SODIUM [Suspect]
     Active Substance: MONTELUKAST SODIUM
     Indication: Product used for unknown indication
  49. MONTELUKAST SODIUM [Suspect]
     Active Substance: MONTELUKAST SODIUM
  50. MONTELUKAST SODIUM [Suspect]
     Active Substance: MONTELUKAST SODIUM
  51. MOXIFLOXACIN HYDROCHLORIDE [Suspect]
     Active Substance: MOXIFLOXACIN HYDROCHLORIDE
     Indication: Product used for unknown indication
     Route: 058
  52. MOXIFLOXACIN HYDROCHLORIDE [Suspect]
     Active Substance: MOXIFLOXACIN HYDROCHLORIDE
  53. MOXIFLOXACIN HYDROCHLORIDE [Suspect]
     Active Substance: MOXIFLOXACIN HYDROCHLORIDE
  54. MOXIFLOXACIN HYDROCHLORIDE [Suspect]
     Active Substance: MOXIFLOXACIN HYDROCHLORIDE
  55. MOXIFLOXACIN HYDROCHLORIDE [Suspect]
     Active Substance: MOXIFLOXACIN HYDROCHLORIDE
  56. ONDANSETRON [Suspect]
     Active Substance: ONDANSETRON
     Indication: Product used for unknown indication
  57. ONDANSETRON [Suspect]
     Active Substance: ONDANSETRON
  58. ONDANSETRON [Suspect]
     Active Substance: ONDANSETRON
  59. PANTOPRAZOLE SODIUM [Suspect]
     Active Substance: PANTOPRAZOLE SODIUM
     Indication: Product used for unknown indication
  60. PANTOPRAZOLE SODIUM [Suspect]
     Active Substance: PANTOPRAZOLE SODIUM
  61. PANTOPRAZOLE SODIUM [Suspect]
     Active Substance: PANTOPRAZOLE SODIUM
  62. PANTOPRAZOLE SODIUM [Suspect]
     Active Substance: PANTOPRAZOLE SODIUM
  63. FLUCONAZOLE [Suspect]
     Active Substance: FLUCONAZOLE
     Indication: Product used for unknown indication
  64. FLUCONAZOLE [Suspect]
     Active Substance: FLUCONAZOLE
  65. FLUCONAZOLE [Suspect]
     Active Substance: FLUCONAZOLE
  66. FUROSEMIDE [Suspect]
     Active Substance: FUROSEMIDE
     Indication: Product used for unknown indication
  67. FUROSEMIDE [Suspect]
     Active Substance: FUROSEMIDE
  68. FUROSEMIDE [Suspect]
     Active Substance: FUROSEMIDE
  69. VENLAFAXINE HYDROCHLORIDE [Suspect]
     Active Substance: VENLAFAXINE HYDROCHLORIDE
     Indication: Product used for unknown indication
  70. VENLAFAXINE HYDROCHLORIDE [Suspect]
     Active Substance: VENLAFAXINE HYDROCHLORIDE
  71. RITUXIMAB [Suspect]
     Active Substance: RITUXIMAB
     Indication: Rheumatoid arthritis
     Dosage: 1000 MG, QD, DOSE FORM: CONCENTRATE FOR SOLUTION FOR INFUSION
     Route: 042
  72. RITUXIMAB [Suspect]
     Active Substance: RITUXIMAB
  73. RITUXIMAB [Suspect]
     Active Substance: RITUXIMAB
     Dosage: 1000 MG, QD, DOSE FORM: CONCENTRATE FOR SOLUTION FOR INFUSION
  74. RITUXIMAB [Suspect]
     Active Substance: RITUXIMAB
     Dosage: 1000 MG, QD, DOSE FORM: CONCENTRATE FOR SOLUTION FOR INFUSION
     Route: 042
  75. RITUXIMAB [Suspect]
     Active Substance: RITUXIMAB
     Dosage: 1000 MG, QD, DOSE FORM: CONCENTRATE FOR SOLUTION FOR INFUSION
     Route: 042
  76. RITUXIMAB [Suspect]
     Active Substance: RITUXIMAB
     Dosage: 1000 MG, QD, DOSE FORM: CONCENTRATE FOR SOLUTION FOR INFUSION
  77. RITUXIMAB [Suspect]
     Active Substance: RITUXIMAB
     Dosage: 1000 MG, QD, DOSE FORM: CONCENTRATE FOR SOLUTION FOR INFUSION
     Route: 042
  78. RITUXIMAB [Suspect]
     Active Substance: RITUXIMAB
     Dosage: 1000 MG, QD, DOSE FORM: CONCENTRATE FOR SOLUTION FOR INFUSION
     Route: 042
  79. RITUXIMAB [Suspect]
     Active Substance: RITUXIMAB
     Dosage: 1000 MG, QD, DOSE FORM: CONCENTRATE FOR SOLUTION FOR INFUSION
     Route: 042
  80. RITUXIMAB [Suspect]
     Active Substance: RITUXIMAB
     Route: 042
  81. RITUXIMAB [Suspect]
     Active Substance: RITUXIMAB
  82. RITUXIMAB [Suspect]
     Active Substance: RITUXIMAB
  83. RITUXIMAB [Suspect]
     Active Substance: RITUXIMAB
  84. RITUXIMAB [Suspect]
     Active Substance: RITUXIMAB
  85. RITUXIMAB [Suspect]
     Active Substance: RITUXIMAB
     Route: 050
  86. RITUXIMAB [Suspect]
     Active Substance: RITUXIMAB
     Route: 042
  87. RITUXIMAB [Suspect]
     Active Substance: RITUXIMAB
     Dosage: 1000 MG, DOSE FORM: CONCENTRATE FOR SOLUTION FOR INFUSION
     Route: 042
  88. RITUXIMAB [Suspect]
     Active Substance: RITUXIMAB
  89. RITUXIMAB [Suspect]
     Active Substance: RITUXIMAB
     Route: 050
  90. MONTELUKAST [Suspect]
     Active Substance: MONTELUKAST
     Indication: Product used for unknown indication
  91. MONTELUKAST [Suspect]
     Active Substance: MONTELUKAST
  92. ADVAIR HFA [Suspect]
     Active Substance: FLUTICASONE PROPIONATE\SALMETEROL XINAFOATE
     Indication: Product used for unknown indication
     Dosage: 500MG 5QD
  93. ADVAIR HFA [Suspect]
     Active Substance: FLUTICASONE PROPIONATE\SALMETEROL XINAFOATE
     Dosage: 500MG 5QD
  94. ADVAIR HFA [Suspect]
     Active Substance: FLUTICASONE PROPIONATE\SALMETEROL XINAFOATE
     Dosage: 500MG 5QD
  95. ADVAIR HFA [Suspect]
     Active Substance: FLUTICASONE PROPIONATE\SALMETEROL XINAFOATE
     Dosage: 500 MG, QD
  96. ADVAIR HFA [Suspect]
     Active Substance: FLUTICASONE PROPIONATE\SALMETEROL XINAFOATE
     Dosage: 500 MG, QD
  97. ADVAIR HFA [Suspect]
     Active Substance: FLUTICASONE PROPIONATE\SALMETEROL XINAFOATE
     Dosage: 500 MG, QD
  98. ADVAIR HFA [Suspect]
     Active Substance: FLUTICASONE PROPIONATE\SALMETEROL XINAFOATE
     Dosage: 500 MG, QD
  99. ADVAIR HFA [Suspect]
     Active Substance: FLUTICASONE PROPIONATE\SALMETEROL XINAFOATE
  100. ADVAIR HFA [Suspect]
     Active Substance: FLUTICASONE PROPIONATE\SALMETEROL XINAFOATE
     Dosage: 500MG 5QD
  101. ADVAIR HFA [Suspect]
     Active Substance: FLUTICASONE PROPIONATE\SALMETEROL XINAFOATE
     Dosage: 500MG 5QD
  102. ADVAIR HFA [Suspect]
     Active Substance: FLUTICASONE PROPIONATE\SALMETEROL XINAFOATE
     Dosage: 500MG 5QD
  103. ADVAIR HFA [Suspect]
     Active Substance: FLUTICASONE PROPIONATE\SALMETEROL XINAFOATE
  104. ADVAIR HFA [Suspect]
     Active Substance: FLUTICASONE PROPIONATE\SALMETEROL XINAFOATE
  105. ADVAIR HFA [Suspect]
     Active Substance: FLUTICASONE PROPIONATE\SALMETEROL XINAFOATE
  106. ALBUTEROL SULFATE [Suspect]
     Active Substance: ALBUTEROL SULFATE
     Indication: Product used for unknown indication
  107. ALBUTEROL SULFATE [Suspect]
     Active Substance: ALBUTEROL SULFATE
  108. ALBUTEROL SULFATE [Suspect]
     Active Substance: ALBUTEROL SULFATE
  109. ALBUTEROL SULFATE [Suspect]
     Active Substance: ALBUTEROL SULFATE
  110. ALBUTEROL SULFATE [Suspect]
     Active Substance: ALBUTEROL SULFATE
  111. ALBUTEROL SULFATE [Suspect]
     Active Substance: ALBUTEROL SULFATE
  112. ALBUTEROL SULFATE [Suspect]
     Active Substance: ALBUTEROL SULFATE
  113. ALBUTEROL SULFATE [Suspect]
     Active Substance: ALBUTEROL SULFATE
  114. ALBUTEROL SULFATE [Suspect]
     Active Substance: ALBUTEROL SULFATE
  115. ALBUTEROL SULFATE [Suspect]
     Active Substance: ALBUTEROL SULFATE
  116. ALBUTEROL SULFATE [Suspect]
     Active Substance: ALBUTEROL SULFATE
  117. ALBUTEROL SULFATE [Suspect]
     Active Substance: ALBUTEROL SULFATE
  118. ALBUTEROL [Suspect]
     Active Substance: ALBUTEROL
     Indication: Product used for unknown indication
  119. ALBUTEROL [Suspect]
     Active Substance: ALBUTEROL
  120. ALBUTEROL [Suspect]
     Active Substance: ALBUTEROL
  121. ALBUTEROL [Suspect]
     Active Substance: ALBUTEROL
  122. DIPHENHYDRAMINE [Suspect]
     Active Substance: DIPHENHYDRAMINE
     Indication: Product used for unknown indication
  123. NORTRIPTYLINE HYDROCHLORIDE [Suspect]
     Active Substance: NORTRIPTYLINE HYDROCHLORIDE
     Indication: Product used for unknown indication
  124. NORTRIPTYLINE HYDROCHLORIDE [Suspect]
     Active Substance: NORTRIPTYLINE HYDROCHLORIDE
  125. NORTRIPTYLINE HYDROCHLORIDE [Suspect]
     Active Substance: NORTRIPTYLINE HYDROCHLORIDE
  126. BUPROPION HYDROCHLORIDE [Suspect]
     Active Substance: BUPROPION HYDROCHLORIDE
     Indication: Product used for unknown indication
  127. BUPROPION HYDROCHLORIDE [Suspect]
     Active Substance: BUPROPION HYDROCHLORIDE
  128. BUPROPION HYDROCHLORIDE [Suspect]
     Active Substance: BUPROPION HYDROCHLORIDE
  129. BUPROPION HYDROCHLORIDE [Suspect]
     Active Substance: BUPROPION HYDROCHLORIDE
  130. BUPROPION HYDROCHLORIDE [Suspect]
     Active Substance: BUPROPION HYDROCHLORIDE
  131. BUPROPION HYDROCHLORIDE [Suspect]
     Active Substance: BUPROPION HYDROCHLORIDE
  132. BUPROPION HYDROCHLORIDE [Suspect]
     Active Substance: BUPROPION HYDROCHLORIDE
  133. BUPROPION HYDROCHLORIDE [Suspect]
     Active Substance: BUPROPION HYDROCHLORIDE
  134. BUPROPION HYDROCHLORIDE [Suspect]
     Active Substance: BUPROPION HYDROCHLORIDE
  135. BUPROPION HYDROCHLORIDE [Suspect]
     Active Substance: BUPROPION HYDROCHLORIDE
  136. BUPROPION HYDROCHLORIDE [Suspect]
     Active Substance: BUPROPION HYDROCHLORIDE
  137. CETIRIZINE HYDROCHLORIDE [Suspect]
     Active Substance: CETIRIZINE HYDROCHLORIDE
     Indication: Product used for unknown indication
     Dosage: 20 MG, QD
  138. CETIRIZINE HYDROCHLORIDE [Suspect]
     Active Substance: CETIRIZINE HYDROCHLORIDE
     Dosage: 20 MG, QD
  139. CETIRIZINE HYDROCHLORIDE [Suspect]
     Active Substance: CETIRIZINE HYDROCHLORIDE
     Dosage: 20 MG, QD
  140. CETIRIZINE HYDROCHLORIDE [Suspect]
     Active Substance: CETIRIZINE HYDROCHLORIDE
     Dosage: 20 MG, QD
  141. CETIRIZINE HYDROCHLORIDE [Suspect]
     Active Substance: CETIRIZINE HYDROCHLORIDE
     Dosage: 20 MG, QD
  142. CETIRIZINE HYDROCHLORIDE [Suspect]
     Active Substance: CETIRIZINE HYDROCHLORIDE
     Dosage: 20 MG, QD
  143. CETIRIZINE HYDROCHLORIDE [Suspect]
     Active Substance: CETIRIZINE HYDROCHLORIDE
     Dosage: 20 MG, QD
  144. CETIRIZINE HYDROCHLORIDE [Suspect]
     Active Substance: CETIRIZINE HYDROCHLORIDE
     Dosage: 20 MG, QD
  145. OXYCODONE AND ACETAMINOPHEN [Suspect]
     Active Substance: ACETAMINOPHEN\OXYCODONE HYDROCHLORIDE
     Indication: Product used for unknown indication
  146. OXYCODONE AND ACETAMINOPHEN [Suspect]
     Active Substance: ACETAMINOPHEN\OXYCODONE HYDROCHLORIDE
  147. CLONIDINE [Suspect]
     Active Substance: CLONIDINE
     Indication: Eczema
  148. CLONIDINE [Suspect]
     Active Substance: CLONIDINE
  149. CLONIDINE [Suspect]
     Active Substance: CLONIDINE
  150. CLONIDINE [Suspect]
     Active Substance: CLONIDINE
  151. CLONIDINE [Suspect]
     Active Substance: CLONIDINE
  152. CLONIDINE [Suspect]
     Active Substance: CLONIDINE
  153. CLONIDINE [Suspect]
     Active Substance: CLONIDINE
  154. FLUCONAZOLE [Suspect]
     Active Substance: FLUCONAZOLE
     Indication: Product used for unknown indication
  155. FLUCONAZOLE [Suspect]
     Active Substance: FLUCONAZOLE
  156. HYDROMORPHONE [Suspect]
     Active Substance: HYDROMORPHONE
     Indication: Product used for unknown indication
  157. HYDROMORPHONE [Suspect]
     Active Substance: HYDROMORPHONE
  158. HYDROMORPHONE [Suspect]
     Active Substance: HYDROMORPHONE
  159. HYDROMORPHONE [Suspect]
     Active Substance: HYDROMORPHONE
  160. HYDROMORPHONE HYDROCHLORIDE [Suspect]
     Active Substance: HYDROMORPHONE HYDROCHLORIDE
     Indication: Product used for unknown indication
  161. HYDROMORPHONE HYDROCHLORIDE [Suspect]
     Active Substance: HYDROMORPHONE HYDROCHLORIDE
  162. HYDROMORPHONE HYDROCHLORIDE [Suspect]
     Active Substance: HYDROMORPHONE HYDROCHLORIDE
  163. HYDROMORPHONE HYDROCHLORIDE [Suspect]
     Active Substance: HYDROMORPHONE HYDROCHLORIDE
  164. ABACAVIR [Suspect]
     Active Substance: ABACAVIR
     Indication: Product used for unknown indication
  165. ABACAVIR [Suspect]
     Active Substance: ABACAVIR
  166. ABACAVIR\LAMIVUDINE [Suspect]
     Active Substance: ABACAVIR\LAMIVUDINE
     Indication: Product used for unknown indication
  167. ABACAVIR\LAMIVUDINE [Suspect]
     Active Substance: ABACAVIR\LAMIVUDINE
  168. ACTEMRA [Suspect]
     Active Substance: TOCILIZUMAB
     Indication: Rheumatoid arthritis
     Dosage: 500MG 5QD, DOSE FORM: SOLUTION FOR INJECTION
     Route: 058
  169. ACTEMRA [Suspect]
     Active Substance: TOCILIZUMAB
     Route: 058
  170. ACTEMRA [Suspect]
     Active Substance: TOCILIZUMAB
     Dosage: 500 MG, QD, DOSE FORM: SOLUTION FOR INJECTION
     Route: 058
  171. ACTEMRA [Suspect]
     Active Substance: TOCILIZUMAB
  172. ACTEMRA [Suspect]
     Active Substance: TOCILIZUMAB
     Dosage: 50MG 5QD, DOSE FORM: SOLUTION FOR INJECTION
     Route: 058
  173. ACTEMRA [Suspect]
     Active Substance: TOCILIZUMAB
     Dosage: 500MG 5QD, DOSE FORM: SOLUTION FOR INJECTION
     Route: 058
  174. ACTEMRA [Suspect]
     Active Substance: TOCILIZUMAB
     Dosage: 500MG 5QD, DOSE FORM: SOLUTION FOR INJECTION
     Route: 058
  175. ACTEMRA [Suspect]
     Active Substance: TOCILIZUMAB
     Dosage: 500MG 5QD, DOSE FORM: SOLUTION FOR INJECTION
     Route: 058
  176. ACTEMRA [Suspect]
     Active Substance: TOCILIZUMAB
  177. ACTEMRA [Suspect]
     Active Substance: TOCILIZUMAB
  178. ACTEMRA [Suspect]
     Active Substance: TOCILIZUMAB
     Dosage: 500 MG, QD, DOSE FORM: SOLUTION FOR INJECTION
     Route: 058
  179. ACTEMRA [Suspect]
     Active Substance: TOCILIZUMAB
     Route: 058
  180. ACTEMRA [Suspect]
     Active Substance: TOCILIZUMAB
     Dosage: 100 MG, QD, DOSE FORM: SOLUTION FOR INJECTION
     Route: 058
  181. ACTEMRA [Suspect]
     Active Substance: TOCILIZUMAB
  182. ACTEMRA [Suspect]
     Active Substance: TOCILIZUMAB
     Route: 058
  183. ACTEMRA [Suspect]
     Active Substance: TOCILIZUMAB
     Route: 058
  184. CHLORMEZANONE [Suspect]
     Active Substance: CHLORMEZANONE
     Indication: Rheumatoid arthritis
  185. CHLORMEZANONE [Suspect]
     Active Substance: CHLORMEZANONE
  186. CHLORMEZANONE [Suspect]
     Active Substance: CHLORMEZANONE
  187. CHLORMEZANONE [Suspect]
     Active Substance: CHLORMEZANONE
  188. CHLORMEZANONE [Suspect]
     Active Substance: CHLORMEZANONE
  189. CHLORMEZANONE [Suspect]
     Active Substance: CHLORMEZANONE
  190. CHLORMEZANONE [Suspect]
     Active Substance: CHLORMEZANONE
  191. CHLORMEZANONE [Suspect]
     Active Substance: CHLORMEZANONE
  192. CHLORMEZANONE [Suspect]
     Active Substance: CHLORMEZANONE
  193. CITALOPRAM HYDROBROMIDE [Suspect]
     Active Substance: CITALOPRAM HYDROBROMIDE
     Indication: Product used for unknown indication
  194. CITALOPRAM HYDROBROMIDE [Suspect]
     Active Substance: CITALOPRAM HYDROBROMIDE
  195. CITALOPRAM HYDROBROMIDE [Suspect]
     Active Substance: CITALOPRAM HYDROBROMIDE
  196. CITALOPRAM HYDROBROMIDE [Suspect]
     Active Substance: CITALOPRAM HYDROBROMIDE
  197. CITALOPRAM HYDROBROMIDE [Suspect]
     Active Substance: CITALOPRAM HYDROBROMIDE
  198. CITALOPRAM HYDROBROMIDE [Suspect]
     Active Substance: CITALOPRAM HYDROBROMIDE
  199. CITALOPRAM HYDROBROMIDE [Suspect]
     Active Substance: CITALOPRAM HYDROBROMIDE
  200. CITALOPRAM HYDROBROMIDE [Suspect]
     Active Substance: CITALOPRAM HYDROBROMIDE
  201. CODEINE [Suspect]
     Active Substance: CODEINE
     Indication: Product used for unknown indication
  202. CODEINE [Suspect]
     Active Substance: CODEINE
  203. CRINONE [Suspect]
     Active Substance: PROGESTERONE
     Indication: Product used for unknown indication
  204. CRINONE [Suspect]
     Active Substance: PROGESTERONE
  205. CRINONE [Suspect]
     Active Substance: PROGESTERONE
  206. CRINONE [Suspect]
     Active Substance: PROGESTERONE
  207. CRINONE [Suspect]
     Active Substance: PROGESTERONE
  208. CRINONE [Suspect]
     Active Substance: PROGESTERONE
  209. CRINONE [Suspect]
     Active Substance: PROGESTERONE
  210. CRINONE [Suspect]
     Active Substance: PROGESTERONE
  211. CRINONE [Suspect]
     Active Substance: PROGESTERONE
  212. CRINONE [Suspect]
     Active Substance: PROGESTERONE
  213. CRINONE [Suspect]
     Active Substance: PROGESTERONE
  214. CRINONE [Suspect]
     Active Substance: PROGESTERONE
  215. CYCLOBENZAPRINE [Suspect]
     Active Substance: CYCLOBENZAPRINE
     Indication: Eczema
  216. CYCLOBENZAPRINE [Suspect]
     Active Substance: CYCLOBENZAPRINE
  217. CYCLOBENZAPRINE [Suspect]
     Active Substance: CYCLOBENZAPRINE
  218. CYCLOBENZAPRINE [Suspect]
     Active Substance: CYCLOBENZAPRINE
  219. CYCLOBENZAPRINE [Suspect]
     Active Substance: CYCLOBENZAPRINE
  220. CYCLOBENZAPRINE [Suspect]
     Active Substance: CYCLOBENZAPRINE
  221. CYCLOBENZAPRINE [Suspect]
     Active Substance: CYCLOBENZAPRINE
  222. CYCLOBENZAPRINE [Suspect]
     Active Substance: CYCLOBENZAPRINE
  223. CYCLOBENZAPRINE [Suspect]
     Active Substance: CYCLOBENZAPRINE
  224. CYCLOBENZAPRINE HYDROCHLORIDE [Suspect]
     Active Substance: CYCLOBENZAPRINE HYDROCHLORIDE
     Indication: Eczema
  225. CYCLOBENZAPRINE HYDROCHLORIDE [Suspect]
     Active Substance: CYCLOBENZAPRINE HYDROCHLORIDE
  226. DEMEROL [Suspect]
     Active Substance: MEPERIDINE HYDROCHLORIDE
     Indication: Product used for unknown indication
  227. DEMEROL [Suspect]
     Active Substance: MEPERIDINE HYDROCHLORIDE
  228. DEMEROL [Suspect]
     Active Substance: MEPERIDINE HYDROCHLORIDE
  229. DEMEROL [Suspect]
     Active Substance: MEPERIDINE HYDROCHLORIDE
  230. FLOVENT [Suspect]
     Active Substance: FLUTICASONE PROPIONATE
     Indication: Product used for unknown indication
     Dosage: UNK, QD
  231. FLOVENT [Suspect]
     Active Substance: FLUTICASONE PROPIONATE
  232. FLOVENT [Suspect]
     Active Substance: FLUTICASONE PROPIONATE
  233. NORTRIPTYLINE [Suspect]
     Active Substance: NORTRIPTYLINE
     Indication: Product used for unknown indication
  234. NORTRIPTYLINE [Suspect]
     Active Substance: NORTRIPTYLINE
  235. NORTRIPTYLINE [Suspect]
     Active Substance: NORTRIPTYLINE
  236. NORTRIPTYLINE [Suspect]
     Active Substance: NORTRIPTYLINE
  237. NORTRIPTYLINE HYDROCHLORIDE [Suspect]
     Active Substance: NORTRIPTYLINE HYDROCHLORIDE
     Indication: Product used for unknown indication
  238. NORTRIPTYLINE HYDROCHLORIDE [Suspect]
     Active Substance: NORTRIPTYLINE HYDROCHLORIDE
  239. NORTRIPTYLINE HYDROCHLORIDE [Suspect]
     Active Substance: NORTRIPTYLINE HYDROCHLORIDE
     Dosage: 10 MG, QD, UNKNOWN ROUTE
  240. NORTRIPTYLINE HYDROCHLORIDE [Suspect]
     Active Substance: NORTRIPTYLINE HYDROCHLORIDE
  241. NORTRIPTYLINE HYDROCHLORIDE [Suspect]
     Active Substance: NORTRIPTYLINE HYDROCHLORIDE
  242. ORENCIA [Suspect]
     Active Substance: ABATACEPT
     Indication: Product used for unknown indication
  243. ORENCIA [Suspect]
     Active Substance: ABATACEPT
  244. ORENCIA [Suspect]
     Active Substance: ABATACEPT
  245. ORENCIA [Suspect]
     Active Substance: ABATACEPT
     Dosage: 1 DOSAGE FORM, QD
  246. ORENCIA [Suspect]
     Active Substance: ABATACEPT
     Dosage: UNK, QW
     Route: 042
  247. ORENCIA [Suspect]
     Active Substance: ABATACEPT
     Dosage: 1 DOSAGE FORM, QW
     Route: 042
  248. PANTOPRAZOLE MAGNESIUM [Suspect]
     Active Substance: PANTOPRAZOLE MAGNESIUM
     Indication: Product used for unknown indication
  249. PANTOPRAZOLE MAGNESIUM [Suspect]
     Active Substance: PANTOPRAZOLE MAGNESIUM
  250. PANTOPRAZOLE MAGNESIUM [Suspect]
     Active Substance: PANTOPRAZOLE MAGNESIUM
  251. PANTOPRAZOLE MAGNESIUM [Suspect]
     Active Substance: PANTOPRAZOLE MAGNESIUM
  252. PANTOPRAZOLE MAGNESIUM [Suspect]
     Active Substance: PANTOPRAZOLE MAGNESIUM
  253. PANTOPRAZOLE MAGNESIUM [Suspect]
     Active Substance: PANTOPRAZOLE MAGNESIUM
  254. PANTOPRAZOLE MAGNESIUM [Suspect]
     Active Substance: PANTOPRAZOLE MAGNESIUM
  255. PANTOPRAZOLE MAGNESIUM [Suspect]
     Active Substance: PANTOPRAZOLE MAGNESIUM
  256. PANTOPRAZOLE MAGNESIUM [Suspect]
     Active Substance: PANTOPRAZOLE MAGNESIUM
  257. PANTOPRAZOLE MAGNESIUM [Suspect]
     Active Substance: PANTOPRAZOLE MAGNESIUM
  258. PANTOPRAZOLE MAGNESIUM [Suspect]
     Active Substance: PANTOPRAZOLE MAGNESIUM
  259. PANTOPRAZOLE MAGNESIUM [Suspect]
     Active Substance: PANTOPRAZOLE MAGNESIUM
  260. GABAPENTIN [Suspect]
     Active Substance: GABAPENTIN
     Indication: Product used for unknown indication
  261. GABAPENTIN [Suspect]
     Active Substance: GABAPENTIN
  262. GABAPENTIN [Suspect]
     Active Substance: GABAPENTIN
  263. HUMIRA [Suspect]
     Active Substance: ADALIMUMAB
     Indication: Product used for unknown indication
     Route: 058
  264. HUMIRA [Suspect]
     Active Substance: ADALIMUMAB
     Route: 058
  265. HUMIRA [Suspect]
     Active Substance: ADALIMUMAB
     Route: 058
  266. HUMIRA [Suspect]
     Active Substance: ADALIMUMAB
     Route: 058
  267. HUMIRA [Suspect]
     Active Substance: ADALIMUMAB
     Route: 058
  268. HYDROMORPHONE HYDROCHLORIDE [Suspect]
     Active Substance: HYDROMORPHONE HYDROCHLORIDE
     Indication: Product used for unknown indication
  269. HYDROMORPHONE HYDROCHLORIDE [Suspect]
     Active Substance: HYDROMORPHONE HYDROCHLORIDE
  270. HYDROMORPHONE HYDROCHLORIDE [Suspect]
     Active Substance: HYDROMORPHONE HYDROCHLORIDE
  271. HYDROMORPHONE HYDROCHLORIDE [Suspect]
     Active Substance: HYDROMORPHONE HYDROCHLORIDE
  272. HYDROMORPHONE HYDROCHLORIDE [Suspect]
     Active Substance: HYDROMORPHONE HYDROCHLORIDE
  273. HYDROMORPHONE HYDROCHLORIDE [Suspect]
     Active Substance: HYDROMORPHONE HYDROCHLORIDE
  274. KETOPROFEN [Suspect]
     Active Substance: KETOPROFEN
     Indication: Product used for unknown indication
  275. KETOPROFEN [Suspect]
     Active Substance: KETOPROFEN
  276. KETOPROFEN [Suspect]
     Active Substance: KETOPROFEN
  277. METHYLPREDNISOLONE [Suspect]
     Active Substance: METHYLPREDNISOLONE
     Indication: Product used for unknown indication
  278. METHYLPREDNISOLONE [Suspect]
     Active Substance: METHYLPREDNISOLONE
  279. METHYLPREDNISOLONE [Suspect]
     Active Substance: METHYLPREDNISOLONE
  280. METHYLPREDNISOLONE [Suspect]
     Active Substance: METHYLPREDNISOLONE
  281. METHYLPREDNISOLONE [Suspect]
     Active Substance: METHYLPREDNISOLONE
     Dosage: UNK, QMO, DOSE FORM: SOLUTION FOR INJECTION
  282. METHYLPREDNISOLONE [Suspect]
     Active Substance: METHYLPREDNISOLONE
  283. METHYLPREDNISOLONE [Suspect]
     Active Substance: METHYLPREDNISOLONE
     Dosage: 1 DOSAGE FORM, QD, DOSE FORM: SOLUTION FOR INJECTION, ROUTE: UNKNOWN
  284. METHYLPREDNISOLONE [Suspect]
     Active Substance: METHYLPREDNISOLONE
     Dosage: UNK, QD, DOSE FORM: SOLUTION FOR INJECTION
  285. METHYLPREDNISOLONE [Suspect]
     Active Substance: METHYLPREDNISOLONE
  286. METHYLPREDNISOLONE [Suspect]
     Active Substance: METHYLPREDNISOLONE
  287. METHYLPREDNISOLONE [Suspect]
     Active Substance: METHYLPREDNISOLONE
  288. METHYLPREDNISOLONE [Suspect]
     Active Substance: METHYLPREDNISOLONE
     Dosage: UNK, QMO, DOSE FORM: SOLUTION FOR INJECTION
  289. METHYLPREDNISOLONE [Suspect]
     Active Substance: METHYLPREDNISOLONE
  290. METHYLPREDNISOLONE [Suspect]
     Active Substance: METHYLPREDNISOLONE
     Dosage: 1 DOSAGE FORM, QMO, DOSE FORM: SOLUTION FOR INJECTION
  291. METHYLPREDNISOLONE [Suspect]
     Active Substance: METHYLPREDNISOLONE
  292. METHYLPREDNISOLONE [Suspect]
     Active Substance: METHYLPREDNISOLONE
     Dosage: 1 DOSAGE FORM, QMO, DOSE FORM: SOLUTION FOR INJECTION
  293. METHYLPREDNISOLONE [Suspect]
     Active Substance: METHYLPREDNISOLONE
     Dosage: UNK, QMO, DOSE FORM: SOLUTION FOR INJECTION
  294. METHYLPREDNISOLONE [Suspect]
     Active Substance: METHYLPREDNISOLONE
  295. METHYLPREDNISOLONE ACETATE [Suspect]
     Active Substance: METHYLPREDNISOLONE ACETATE
     Indication: Product used for unknown indication
     Dosage: UNK, QD, DOSE FORM: SOLUTION FOR INJECTION
  296. METHYLPREDNISOLONE ACETATE [Suspect]
     Active Substance: METHYLPREDNISOLONE ACETATE
  297. METHYLPREDNISOLONE ACETATE [Suspect]
     Active Substance: METHYLPREDNISOLONE ACETATE
  298. METHYLPREDNISOLONE ACETATE [Suspect]
     Active Substance: METHYLPREDNISOLONE ACETATE
     Dosage: 1 DOSAGE FORM, DOSE FORM: SOLUTION FOR INJECTION
  299. METHYLPREDNISOLONE ACETATE [Suspect]
     Active Substance: METHYLPREDNISOLONE ACETATE
  300. METHYLPREDNISOLONE ACETATE [Suspect]
     Active Substance: METHYLPREDNISOLONE ACETATE
  301. METHYLPREDNISOLONE ACETATE [Suspect]
     Active Substance: METHYLPREDNISOLONE ACETATE
  302. METHYLPREDNISOLONE ACETATE [Suspect]
     Active Substance: METHYLPREDNISOLONE ACETATE
  303. METHYLPREDNISOLONE ACETATE [Suspect]
     Active Substance: METHYLPREDNISOLONE ACETATE
  304. METHYLPREDNISOLONE ACETATE [Suspect]
     Active Substance: METHYLPREDNISOLONE ACETATE
  305. METHYLPREDNISOLONE ACETATE [Suspect]
     Active Substance: METHYLPREDNISOLONE ACETATE
     Dosage: UNK, QD, DOSE FORM: SOLUTION FOR INJECTION
  306. METHYLPREDNISOLONE ACETATE [Suspect]
     Active Substance: METHYLPREDNISOLONE ACETATE
  307. METHYLPREDNISOLONE ACETATE [Suspect]
     Active Substance: METHYLPREDNISOLONE ACETATE
     Dosage: UNK, 5QD, DOSE FORM: SOLUTION FOR INJECTION
  308. METHYLPREDNISOLONE ACETATE [Suspect]
     Active Substance: METHYLPREDNISOLONE ACETATE
     Dosage: UNK, QD, DOSE FORM: SOLUTION FOR INJECTION
  309. METHYLPREDNISOLONE ACETATE [Suspect]
     Active Substance: METHYLPREDNISOLONE ACETATE
  310. METHYLPREDNISOLONE ACETATE [Suspect]
     Active Substance: METHYLPREDNISOLONE ACETATE
  311. METHYLPREDNISOLONE ACETATE [Suspect]
     Active Substance: METHYLPREDNISOLONE ACETATE
     Dosage: DOSE FORM: SOLUTION FOR INJECTION
  312. METHYLPREDNISOLONE ACETATE [Suspect]
     Active Substance: METHYLPREDNISOLONE ACETATE
  313. METHYLPREDNISOLONE ACETATE [Suspect]
     Active Substance: METHYLPREDNISOLONE ACETATE
  314. METHYLPREDNISOLONE ACETATE [Suspect]
     Active Substance: METHYLPREDNISOLONE ACETATE
  315. METHYLPREDNISOLONE ACETATE [Suspect]
     Active Substance: METHYLPREDNISOLONE ACETATE
  316. METHYLPREDNISOLONE SODIUM SUCCINATE [Suspect]
     Active Substance: METHYLPREDNISOLONE SODIUM SUCCINATE
     Indication: Product used for unknown indication
     Dosage: 1 DOSAGE FORM
  317. METHYLPREDNISOLONE SODIUM SUCCINATE [Suspect]
     Active Substance: METHYLPREDNISOLONE SODIUM SUCCINATE
  318. METHYLPREDNISOLONE SODIUM SUCCINATE [Suspect]
     Active Substance: METHYLPREDNISOLONE SODIUM SUCCINATE
  319. METHYLPREDNISOLONE SODIUM SUCCINATE [Suspect]
     Active Substance: METHYLPREDNISOLONE SODIUM SUCCINATE
  320. METHYLPREDNISOLONE SODIUM SUCCINATE [Suspect]
     Active Substance: METHYLPREDNISOLONE SODIUM SUCCINATE
  321. METHYLPREDNISOLONE SODIUM PHOSPHATE [Suspect]
     Active Substance: METHYLPREDNISOLONE SODIUM PHOSPHATE
     Indication: Product used for unknown indication
  322. METHYLPREDNISOLONE SODIUM PHOSPHATE [Suspect]
     Active Substance: METHYLPREDNISOLONE SODIUM PHOSPHATE
  323. HERBALS\PLANTAGO OVATA LEAF [Suspect]
     Active Substance: HERBALS\PLANTAGO OVATA LEAF
     Indication: Product used for unknown indication
  324. HERBALS\PLANTAGO OVATA LEAF [Suspect]
     Active Substance: HERBALS\PLANTAGO OVATA LEAF
  325. HERBALS\PLANTAGO OVATA LEAF [Suspect]
     Active Substance: HERBALS\PLANTAGO OVATA LEAF
  326. HERBALS\PLANTAGO OVATA LEAF [Suspect]
     Active Substance: HERBALS\PLANTAGO OVATA LEAF
  327. PROGESTERONE [Suspect]
     Active Substance: PROGESTERONE
     Indication: Product used for unknown indication
  328. PROGESTERONE [Suspect]
     Active Substance: PROGESTERONE
  329. PROGESTERONE [Suspect]
     Active Substance: PROGESTERONE
  330. PROGESTERONE [Suspect]
     Active Substance: PROGESTERONE
  331. PROGESTERONE [Suspect]
     Active Substance: PROGESTERONE
  332. PROGESTERONE [Suspect]
     Active Substance: PROGESTERONE
  333. PROGESTERONE [Suspect]
     Active Substance: PROGESTERONE
  334. PROGESTERONE [Suspect]
     Active Substance: PROGESTERONE
  335. PROGESTERONE [Suspect]
     Active Substance: PROGESTERONE
  336. PROGESTERONE [Suspect]
     Active Substance: PROGESTERONE
  337. PROGESTERONE [Suspect]
     Active Substance: PROGESTERONE
  338. PROGESTERONE [Suspect]
     Active Substance: PROGESTERONE
  339. PROGESTERONE [Suspect]
     Active Substance: PROGESTERONE
  340. PROGESTERONE [Suspect]
     Active Substance: PROGESTERONE
  341. PROGESTERONE [Suspect]
     Active Substance: PROGESTERONE
  342. PROGESTERONE [Suspect]
     Active Substance: PROGESTERONE
  343. PROGESTERONE [Suspect]
     Active Substance: PROGESTERONE
  344. PROGESTERONE [Suspect]
     Active Substance: PROGESTERONE
  345. PROGESTERONE [Suspect]
     Active Substance: PROGESTERONE
  346. PROGESTERONE [Suspect]
     Active Substance: PROGESTERONE
  347. PROGESTERONE [Suspect]
     Active Substance: PROGESTERONE
  348. PROGESTERONE [Suspect]
     Active Substance: PROGESTERONE
  349. PROGESTERONE [Suspect]
     Active Substance: PROGESTERONE
  350. PROGESTERONE [Suspect]
     Active Substance: PROGESTERONE
  351. PROGESTERONE [Suspect]
     Active Substance: PROGESTERONE
  352. PROGESTERONE [Suspect]
     Active Substance: PROGESTERONE
  353. PROGESTERONE [Suspect]
     Active Substance: PROGESTERONE
  354. PROGESTERONE [Suspect]
     Active Substance: PROGESTERONE
  355. PROGESTERONE [Suspect]
     Active Substance: PROGESTERONE
  356. PROGESTERONE [Suspect]
     Active Substance: PROGESTERONE
     Indication: Product used for unknown indication
  357. PROGESTERONE [Suspect]
     Active Substance: PROGESTERONE
     Indication: Product used for unknown indication
  358. PROGESTERONE [Suspect]
     Active Substance: PROGESTERONE
     Indication: Product used for unknown indication
  359. PROGESTERONE [Suspect]
     Active Substance: PROGESTERONE
  360. PROGESTERONE [Suspect]
     Active Substance: PROGESTERONE
  361. PSYLLIUM HUSK [Suspect]
     Active Substance: PSYLLIUM HUSK
     Indication: Product used for unknown indication
  362. PSYLLIUM HUSK [Suspect]
     Active Substance: PSYLLIUM HUSK
  363. RANITIDINE HYDROCHLORIDE [Suspect]
     Active Substance: RANITIDINE HYDROCHLORIDE
     Indication: Product used for unknown indication
     Dosage: 20 MG, QD
  364. RANITIDINE HYDROCHLORIDE [Suspect]
     Active Substance: RANITIDINE HYDROCHLORIDE
  365. RANITIDINE HYDROCHLORIDE [Suspect]
     Active Substance: RANITIDINE HYDROCHLORIDE
  366. RANITIDINE HYDROCHLORIDE [Suspect]
     Active Substance: RANITIDINE HYDROCHLORIDE
  367. RANITIDINE HYDROCHLORIDE [Suspect]
     Active Substance: RANITIDINE HYDROCHLORIDE
     Dosage: 2 MG, QD
  368. RANITIDINE HYDROCHLORIDE [Suspect]
     Active Substance: RANITIDINE HYDROCHLORIDE
     Dosage: 2 MG, QD
  369. REMICADE [Suspect]
     Active Substance: INFLIXIMAB
     Indication: Product used for unknown indication
  370. REMICADE [Suspect]
     Active Substance: INFLIXIMAB
  371. REMICADE [Suspect]
     Active Substance: INFLIXIMAB
  372. REMICADE [Suspect]
     Active Substance: INFLIXIMAB
  373. RESTORIL [Suspect]
     Active Substance: TEMAZEPAM
     Indication: Product used for unknown indication
  374. RESTORIL [Suspect]
     Active Substance: TEMAZEPAM
  375. RESTORIL [Suspect]
     Active Substance: TEMAZEPAM
  376. RESTORIL [Suspect]
     Active Substance: TEMAZEPAM
  377. ALBUTEROL [Suspect]
     Active Substance: ALBUTEROL
     Indication: Product used for unknown indication
  378. ALBUTEROL [Suspect]
     Active Substance: ALBUTEROL
  379. ALBUTEROL [Suspect]
     Active Substance: ALBUTEROL
  380. ALBUTEROL [Suspect]
     Active Substance: ALBUTEROL
  381. ALBUTEROL [Suspect]
     Active Substance: ALBUTEROL
  382. ALBUTEROL [Suspect]
     Active Substance: ALBUTEROL
  383. ALBUTEROL [Suspect]
     Active Substance: ALBUTEROL
  384. ALBUTEROL [Suspect]
     Active Substance: ALBUTEROL
  385. VENTOLIN [Suspect]
     Active Substance: ALBUTEROL SULFATE
     Indication: Product used for unknown indication
  386. VENTOLIN [Suspect]
     Active Substance: ALBUTEROL SULFATE
  387. VENTOLIN [Suspect]
     Active Substance: ALBUTEROL SULFATE
  388. VENTOLIN [Suspect]
     Active Substance: ALBUTEROL SULFATE
  389. WELLBUTRIN [Suspect]
     Active Substance: BUPROPION HYDROCHLORIDE
     Indication: Product used for unknown indication
  390. WELLBUTRIN [Suspect]
     Active Substance: BUPROPION HYDROCHLORIDE
  391. WELLBUTRIN [Suspect]
     Active Substance: BUPROPION HYDROCHLORIDE
  392. WELLBUTRIN [Suspect]
     Active Substance: BUPROPION HYDROCHLORIDE
  393. WELLBUTRIN [Suspect]
     Active Substance: BUPROPION HYDROCHLORIDE
  394. WELLBUTRIN [Suspect]
     Active Substance: BUPROPION HYDROCHLORIDE
  395. WELLBUTRIN [Suspect]
     Active Substance: BUPROPION HYDROCHLORIDE
  396. WELLBUTRIN [Suspect]
     Active Substance: BUPROPION HYDROCHLORIDE
  397. ZOPICLONE [Suspect]
     Active Substance: ZOPICLONE
     Indication: Product used for unknown indication
  398. ZOPICLONE [Suspect]
     Active Substance: ZOPICLONE
  399. ZOPICLONE [Suspect]
     Active Substance: ZOPICLONE
  400. ZOPICLONE [Suspect]
     Active Substance: ZOPICLONE
  401. SENNA LEAF [Suspect]
     Active Substance: SENNA LEAF
     Indication: Product used for unknown indication
  402. SENNA LEAF [Suspect]
     Active Substance: SENNA LEAF
  403. SENNA LEAF [Suspect]
     Active Substance: SENNA LEAF
  404. SENNA LEAF [Suspect]
     Active Substance: SENNA LEAF
  405. SENNA LEAF [Suspect]
     Active Substance: SENNA LEAF
  406. SENNA LEAF [Suspect]
     Active Substance: SENNA LEAF
  407. SENNA LEAF [Suspect]
     Active Substance: SENNA LEAF
  408. SENNA LEAF [Suspect]
     Active Substance: SENNA LEAF
  409. SENNA LEAF [Suspect]
     Active Substance: SENNA LEAF
  410. SENNA LEAF [Suspect]
     Active Substance: SENNA LEAF
  411. SENNA LEAF [Suspect]
     Active Substance: SENNA LEAF
  412. SENNA LEAF [Suspect]
     Active Substance: SENNA LEAF
  413. SENNOSIDES A AND B [Suspect]
     Active Substance: SENNOSIDES A AND B
     Indication: Product used for unknown indication
  414. SENNOSIDES A AND B [Suspect]
     Active Substance: SENNOSIDES A AND B
  415. SENNOSIDES A AND B [Suspect]
     Active Substance: SENNOSIDES A AND B
  416. SENNOSIDES A AND B [Suspect]
     Active Substance: SENNOSIDES A AND B
  417. TEMAZEPAM [Suspect]
     Active Substance: TEMAZEPAM
     Indication: Product used for unknown indication
  418. TEMAZEPAM [Suspect]
     Active Substance: TEMAZEPAM
  419. TOCILIZUMAB [Suspect]
     Active Substance: TOCILIZUMAB
     Indication: Rheumatoid arthritis
  420. TOCILIZUMAB [Suspect]
     Active Substance: TOCILIZUMAB
  421. TOCILIZUMAB [Suspect]
     Active Substance: TOCILIZUMAB
  422. TOCILIZUMAB [Suspect]
     Active Substance: TOCILIZUMAB
  423. TOCILIZUMAB [Suspect]
     Active Substance: TOCILIZUMAB
     Dosage: 500MG 5QD
  424. TYLENOL [Suspect]
     Active Substance: ACETAMINOPHEN
     Indication: Product used for unknown indication
  425. TYLENOL [Suspect]
     Active Substance: ACETAMINOPHEN
  426. DOLUTEGRAVIR SODIUM [Concomitant]
     Active Substance: DOLUTEGRAVIR SODIUM
     Indication: Product used for unknown indication
  427. DOLUTEGRAVIR SODIUM [Concomitant]
     Active Substance: DOLUTEGRAVIR SODIUM
  428. ACTEMRA [Suspect]
     Active Substance: TOCILIZUMAB
     Indication: Rheumatoid arthritis
     Route: 058
  429. ACTEMRA [Suspect]
     Active Substance: TOCILIZUMAB
     Route: 058
  430. ACTEMRA [Suspect]
     Active Substance: TOCILIZUMAB
  431. ACTEMRA [Suspect]
     Active Substance: TOCILIZUMAB
  432. ACTEMRA [Suspect]
     Active Substance: TOCILIZUMAB
     Dosage: QD, DOSE FORM: SOLUTION FOR INJECTION IN PRE-FILLED SYRINGE
  433. ACTEMRA [Suspect]
     Active Substance: TOCILIZUMAB
     Dosage: QD, DOSE FORM: SOLUTION FOR INJECTION IN PRE-FILLED SYRINGE
     Route: 058
  434. ACTEMRA [Suspect]
     Active Substance: TOCILIZUMAB
     Dosage: QD, DOSE FORM: SOLUTION FOR INJECTION IN PRE-FILLED SYRINGE
     Route: 058
  435. ACTEMRA [Suspect]
     Active Substance: TOCILIZUMAB
     Dosage: QD, DOSE FORM: SOLUTION FOR INJECTION IN PRE-FILLED SYRINGE
     Route: 058
  436. ACTEMRA [Suspect]
     Active Substance: TOCILIZUMAB
     Dosage: QD, DOSE FORM: SOLUTION FOR INJECTION IN PRE-FILLED SYRINGE
     Route: 058
  437. ACTEMRA [Suspect]
     Active Substance: TOCILIZUMAB
     Dosage: QD, DOSE FORM: SOLUTION FOR INJECTION IN PRE-FILLED SYRINGE
     Route: 058
  438. ACTEMRA [Suspect]
     Active Substance: TOCILIZUMAB
     Dosage: QD, DOSE FORM: SOLUTION FOR INJECTION IN PRE-FILLED SYRINGE
     Route: 058
  439. ACTEMRA [Suspect]
     Active Substance: TOCILIZUMAB
     Dosage: QD, DOSE FORM: SOLUTION FOR INJECTION IN PRE-FILLED SYRINGE
     Route: 058
  440. ACTEMRA [Suspect]
     Active Substance: TOCILIZUMAB
  441. ACTEMRA [Suspect]
     Active Substance: TOCILIZUMAB
  442. ACTEMRA [Suspect]
     Active Substance: TOCILIZUMAB
  443. ACTEMRA [Suspect]
     Active Substance: TOCILIZUMAB
     Route: 050
  444. CETIRIZINE HYDROCHLORIDE [Suspect]
     Active Substance: CETIRIZINE HYDROCHLORIDE
     Indication: Product used for unknown indication
     Dosage: QD
  445. CETIRIZINE HYDROCHLORIDE [Suspect]
     Active Substance: CETIRIZINE HYDROCHLORIDE
     Dosage: QD
  446. CETIRIZINE HYDROCHLORIDE [Suspect]
     Active Substance: CETIRIZINE HYDROCHLORIDE
     Dosage: QD
  447. CETIRIZINE HYDROCHLORIDE [Suspect]
     Active Substance: CETIRIZINE HYDROCHLORIDE
     Dosage: QD
  448. CETIRIZINE HYDROCHLORIDE [Suspect]
     Active Substance: CETIRIZINE HYDROCHLORIDE
     Dosage: QD
  449. CETIRIZINE HYDROCHLORIDE [Suspect]
     Active Substance: CETIRIZINE HYDROCHLORIDE
     Dosage: QD
  450. CETIRIZINE HYDROCHLORIDE [Suspect]
     Active Substance: CETIRIZINE HYDROCHLORIDE
     Dosage: QD
  451. CETIRIZINE HYDROCHLORIDE [Suspect]
     Active Substance: CETIRIZINE HYDROCHLORIDE
     Dosage: QD
  452. SINGULAIR [Suspect]
     Active Substance: MONTELUKAST SODIUM
     Indication: Product used for unknown indication
  453. SINGULAIR [Suspect]
     Active Substance: MONTELUKAST SODIUM
     Route: 065
  454. PANTOPRAZOLE MAGNESIUM [Suspect]
     Active Substance: PANTOPRAZOLE MAGNESIUM
     Indication: Product used for unknown indication
  455. PANTOPRAZOLE MAGNESIUM [Suspect]
     Active Substance: PANTOPRAZOLE MAGNESIUM
  456. PANTOPRAZOLE MAGNESIUM [Suspect]
     Active Substance: PANTOPRAZOLE MAGNESIUM
  457. PANTOPRAZOLE MAGNESIUM [Suspect]
     Active Substance: PANTOPRAZOLE MAGNESIUM
  458. PANTOPRAZOLE MAGNESIUM [Suspect]
     Active Substance: PANTOPRAZOLE MAGNESIUM
  459. PANTOPRAZOLE MAGNESIUM [Suspect]
     Active Substance: PANTOPRAZOLE MAGNESIUM
  460. DIETARY SUPPLEMENT [Suspect]
     Active Substance: DIETARY SUPPLEMENT
     Indication: Product used for unknown indication
  461. DIETARY SUPPLEMENT [Suspect]
     Active Substance: DIETARY SUPPLEMENT
  462. VENLAFAXINE [Suspect]
     Active Substance: VENLAFAXINE HYDROCHLORIDE
     Indication: Product used for unknown indication
  463. CRINONE [Suspect]
     Active Substance: PROGESTERONE
     Indication: Product used for unknown indication
  464. NORTRIPTYLINE [Suspect]
     Active Substance: NORTRIPTYLINE
     Indication: Product used for unknown indication
  465. NORTRIPTYLINE [Suspect]
     Active Substance: NORTRIPTYLINE
  466. NORTRIPTYLINE [Suspect]
     Active Substance: NORTRIPTYLINE
  467. DIPHENHYDRAMINE [Suspect]
     Active Substance: DIPHENHYDRAMINE
     Indication: Product used for unknown indication
  468. DIPHENHYDRAMINE [Suspect]
     Active Substance: DIPHENHYDRAMINE
     Dosage: 75 MG, QD, DOSE FORM: OINTMENT
  469. DIPHENHYDRAMINE [Suspect]
     Active Substance: DIPHENHYDRAMINE
     Dosage: 75 MG, QD, DOSE FORM: OINTMENT
  470. DIPHENHYDRAMINE [Suspect]
     Active Substance: DIPHENHYDRAMINE
     Dosage: 75 MG, QD, DOSE FORM: OINTMENT
  471. DIPHENHYDRAMINE [Suspect]
     Active Substance: DIPHENHYDRAMINE
     Dosage: 75 MG, QD, DOSE FORM: OINTMENT
  472. DIPHENHYDRAMINE [Suspect]
     Active Substance: DIPHENHYDRAMINE
  473. DIPHENHYDRAMINE [Suspect]
     Active Substance: DIPHENHYDRAMINE
     Dosage: 75 MG, QD, DOSE FORM: OINTMENT
  474. DIPHENHYDRAMINE [Suspect]
     Active Substance: DIPHENHYDRAMINE
     Dosage: 75 MG, QD, DOSE FORM: OINTMENT
  475. DIPHENHYDRAMINE [Suspect]
     Active Substance: DIPHENHYDRAMINE
  476. CETIRIZINE HYDROCHLORIDE [Suspect]
     Active Substance: CETIRIZINE HYDROCHLORIDE
     Indication: Product used for unknown indication
     Dosage: 20 MG, QD
  477. CETIRIZINE HYDROCHLORIDE [Suspect]
     Active Substance: CETIRIZINE HYDROCHLORIDE
     Dosage: 20 MG, QD
  478. VITAMIN C [Suspect]
     Active Substance: ASCORBIC ACID
     Indication: Product used for unknown indication
  479. VITAMIN C [Suspect]
     Active Substance: ASCORBIC ACID
  480. DIETARY SUPPLEMENT [Suspect]
     Active Substance: DIETARY SUPPLEMENT
     Indication: Product used for unknown indication
  481. DIETARY SUPPLEMENT [Suspect]
     Active Substance: DIETARY SUPPLEMENT
     Indication: Product used for unknown indication
  482. HUMIRA [Suspect]
     Active Substance: ADALIMUMAB
     Indication: Product used for unknown indication
  483. HYDROMORPHONE HYDROCHLORIDE [Suspect]
     Active Substance: HYDROMORPHONE HYDROCHLORIDE
     Indication: Product used for unknown indication
  484. PROGESTERONE [Suspect]
     Active Substance: PROGESTERONE
     Indication: Product used for unknown indication
  485. DICLOFENAC SODIUM [Suspect]
     Active Substance: DICLOFENAC SODIUM
     Indication: Product used for unknown indication
  486. SENOKOT [Suspect]
     Active Substance: SENNOSIDES
     Indication: Product used for unknown indication
  487. SENOKOT [Suspect]
     Active Substance: SENNOSIDES
  488. METHYLPREDNISOLONE [Suspect]
     Active Substance: METHYLPREDNISOLONE
     Indication: Product used for unknown indication
  489. METHYLPREDNISOLONE [Suspect]
     Active Substance: METHYLPREDNISOLONE
     Dosage: UNKNOWN ROUTE
  490. RANITIDINE HYDROCHLORIDE [Suspect]
     Active Substance: RANITIDINE HYDROCHLORIDE
     Indication: Product used for unknown indication
  491. RANITIDINE HYDROCHLORIDE [Suspect]
     Active Substance: RANITIDINE HYDROCHLORIDE
     Dosage: ROUTE: UNKNOWN
  492. WELLBUTRIN [Suspect]
     Active Substance: BUPROPION HYDROCHLORIDE
     Indication: Product used for unknown indication
  493. VITAMIN C [Suspect]
     Active Substance: ASCORBIC ACID
     Indication: Product used for unknown indication

REACTIONS (9)
  - Thrombocytopenia [Not Recovered/Not Resolved]
  - Infection [Not Recovered/Not Resolved]
  - Asthma [Not Recovered/Not Resolved]
  - Exposure during pregnancy [Not Recovered/Not Resolved]
  - Rash [Not Recovered/Not Resolved]
  - Rash erythematous [Not Recovered/Not Resolved]
  - Pyrexia [Not Recovered/Not Resolved]
  - Rheumatoid arthritis [Not Recovered/Not Resolved]
  - Upper respiratory tract infection [Not Recovered/Not Resolved]
